FAERS Safety Report 8014171-1 (Version None)
Quarter: 2011Q4

REPORT INFORMATION
  Report Type: 
  Country: None (occurrence: None)
  Receive Date: 20111229
  Receipt Date: 20111220
  Transmission Date: 20120403
  Serious: Yes (Hospitalization, Other)
  Sender: FDA-Public Use
  Company Number: US-BAXTER-2011BH040030

PATIENT
  Sex: Female

DRUGS (1)
  1. DIANEAL [Suspect]
     Indication: PERITONEAL DIALYSIS
     Route: 033

REACTIONS (5)
  - PERITONEAL CLOUDY EFFLUENT [None]
  - INFECTION [None]
  - ELECTROLYTE IMBALANCE [None]
  - BLOOD POTASSIUM DECREASED [None]
  - NASOPHARYNGITIS [None]
